FAERS Safety Report 7078271-5 (Version None)
Quarter: 2010Q4

REPORT INFORMATION
  Report Type: 
  Country: None (occurrence: None)
  Receive Date: 20101101
  Receipt Date: 20101101
  Transmission Date: 20110411
  Serious: No
  Sender: FDA-Public Use
  Company Number: None

PATIENT
  Sex: Female

DRUGS (1)
  1. SENSIPAR 30MG TABLET [Suspect]
     Indication: SKIN DISORDER
     Dosage: 30 MG PO TAKE 1 TABLET BY MOUTH DAILY
     Route: 048
     Dates: start: 20090402

REACTIONS (5)
  - EAR PRURITUS [None]
  - GLOSSODYNIA [None]
  - PARAESTHESIA ORAL [None]
  - PRURITUS [None]
  - RASH [None]
